FAERS Safety Report 24096841 (Version 1)
Quarter: 2024Q3

REPORT INFORMATION
  Report Type: Spontaneous
  Country: US (occurrence: US)
  Receive Date: 20240716
  Receipt Date: 20240716
  Transmission Date: 20241017
  Serious: Yes (Hospitalization)
  Sender: GRIFOLS
  Company Number: US-GRIFOLS-BIG0024791

PATIENT
  Age: 44 Year
  Sex: Male

DRUGS (7)
  1. HUMAN IMMUNOGLOBULIN G [Suspect]
     Active Substance: HUMAN IMMUNOGLOBULIN G
     Indication: Guillain-Barre syndrome
     Dosage: 4 MILLIGRAM/KILOGRAM, UNKNOWN
     Route: 042
  2. HUMAN IMMUNOGLOBULIN G [Suspect]
     Active Substance: HUMAN IMMUNOGLOBULIN G
     Indication: Off label use
  3. VANCOMYCIN [Concomitant]
     Active Substance: VANCOMYCIN
     Indication: Herpes simplex meningitis
  4. CEFTRIAXONE [Concomitant]
     Active Substance: CEFTRIAXONE\CEFTRIAXONE SODIUM
     Indication: Herpes simplex meningitis
  5. AMPICILLIN [Concomitant]
     Active Substance: AMPICILLIN
     Indication: Herpes simplex meningitis
  6. VALACYCLOVIR [Concomitant]
     Active Substance: VALACYCLOVIR HYDROCHLORIDE
     Indication: Herpes simplex meningitis
  7. DEXAMETHASONE [Concomitant]
     Active Substance: DEXAMETHASONE
     Indication: Herpes simplex meningitis

REACTIONS (2)
  - Deep vein thrombosis [Recovering/Resolving]
  - Misleading laboratory test result [Recovering/Resolving]
